FAERS Safety Report 5484605-5 (Version None)
Quarter: 2007Q4

REPORT INFORMATION
  Report Type: 
  Country: None (occurrence: None)
  Receive Date: 20071012
  Receipt Date: 20071002
  Transmission Date: 20080405
  Serious: Yes (Other)
  Sender: FDA-Public Use
  Company Number: AT-PFIZER INC-2007078420

PATIENT
  Sex: Female

DRUGS (2)
  1. DALACIN [Suspect]
     Indication: DENTAL OPERATION
     Route: 048
  2. ANTIBIOTICS [Suspect]

REACTIONS (2)
  - ACUTE MYOCARDIAL INFARCTION [None]
  - ORAL DISORDER [None]
